FAERS Safety Report 4350739-1 (Version None)
Quarter: 2004Q2

REPORT INFORMATION
  Report Type: 
  Country: None (occurrence: None)
  Receive Date: 20040427
  Receipt Date: 20040415
  Transmission Date: 20050107
  Serious: Yes (Hospitalization, Other)
  Sender: FDA-Public Use
  Company Number: US-JNJFOC-20040403559

PATIENT
  Age: 30 Year
  Sex: Female
  Weight: 90.7194 kg

DRUGS (3)
  1. TOPAMAX [Suspect]
     Indication: CONVULSION
     Dosage: 200 MG, 2 IN 1 DAY, ORAL
     Route: 048
     Dates: start: 20030213
  2. DILANTIN [Concomitant]
  3. ZONOGRAN (ZONISAMIDE) [Concomitant]

REACTIONS (4)
  - CARDIAC FAILURE [None]
  - COMA [None]
  - METABOLIC ACIDOSIS [None]
  - STATUS EPILEPTICUS [None]
